FAERS Safety Report 8473810-1 (Version None)
Quarter: 2012Q2

REPORT INFORMATION
  Report Type: 
  Country: None (occurrence: None)
  Receive Date: 20120628
  Receipt Date: 20120625
  Transmission Date: 20120825
  Serious: Yes (Other)
  Sender: FDA-Public Use
  Company Number: US-MYLANLABS-2011S1024531

PATIENT
  Age: 43 Year
  Sex: Male

DRUGS (2)
  1. CLOZAPINE [Suspect]
     Route: 048
     Dates: start: 20111101, end: 20120101
  2. CLOZAPINE [Suspect]
     Route: 048
     Dates: start: 19990101, end: 20111101

REACTIONS (2)
  - WHITE BLOOD CELL COUNT DECREASED [None]
  - GRANULOCYTOPENIA [None]
